FAERS Safety Report 15533121 (Version 3)
Quarter: 2018Q4

REPORT INFORMATION
  Report Type: Report from Study
  Country: ES (occurrence: ES)
  Receive Date: 20181019
  Receipt Date: 20181219
  Transmission Date: 20190205
  Serious: Yes (Hospitalization, Other)
  Sender: FDA-Public Use
  Company Number: ES-CLOVIS ONCOLOGY-CLO-2018-001453

PATIENT

DRUGS (2)
  1. RUCAPARIB [Suspect]
     Active Substance: RUCAPARIB
     Indication: OVARIAN CANCER
     Dosage: 240 MG, BID
     Route: 048
     Dates: end: 20180927
  2. RUCAPARIB [Suspect]
     Active Substance: RUCAPARIB
     Dosage: 600 MG, BID
     Route: 048
     Dates: start: 20150319

REACTIONS (1)
  - Acute lymphocytic leukaemia [Not Recovered/Not Resolved]

NARRATIVE: CASE EVENT DATE: 20181010
